FAERS Safety Report 5868533-9 (Version None)
Quarter: 2008Q3

REPORT INFORMATION
  Report Type: 
  Country: None (occurrence: None)
  Receive Date: 20080903
  Receipt Date: 20080823
  Transmission Date: 20090109
  Serious: Yes (Other)
  Sender: FDA-Public Use
  Company Number: US-ROCHE-582804

PATIENT
  Age: 24 Year
  Sex: Male

DRUGS (1)
  1. LARIAM [Suspect]
     Indication: DRUG USE FOR UNKNOWN INDICATION
     Route: 065

REACTIONS (5)
  - AMNESIA [None]
  - PHYSICAL ASSAULT [None]
  - POST-TRAUMATIC STRESS DISORDER [None]
  - SEXUAL ABUSE [None]
  - THEFT [None]
